FAERS Safety Report 22109271 (Version 1)
Quarter: 2023Q1

REPORT INFORMATION
  Report Type: Spontaneous
  Country: JP (occurrence: JP)
  Receive Date: 20230317
  Receipt Date: 20230317
  Transmission Date: 20230418
  Serious: No
  Sender: FDA-Public Use
  Company Number: JP-MSD-M2023-08564

PATIENT
  Age: 90 Year
  Sex: Female

DRUGS (1)
  1. LAGEVRIO [Suspect]
     Active Substance: MOLNUPIRAVIR
     Indication: COVID-19 prophylaxis
     Dosage: 800 MILLIGRAM, BID
     Route: 048

REACTIONS (1)
  - Product use in unapproved indication [Unknown]
